FAERS Safety Report 21039565 (Version 2)
Quarter: 2022Q4

REPORT INFORMATION
  Report Type: Report from Study
  Country: CA (occurrence: CA)
  Receive Date: 20220704
  Receipt Date: 20221111
  Transmission Date: 20230113
  Serious: Yes (Death, Hospitalization, Other)
  Sender: FDA-Public Use
  Company Number: CA-PFIZER INC-202200911946

PATIENT
  Age: 67 Year
  Sex: Female
  Weight: 73 kg

DRUGS (32)
  1. DOXORUBICIN HYDROCHLORIDE [Suspect]
     Active Substance: DOXORUBICIN HYDROCHLORIDE
     Dosage: UNK
     Route: 065
  2. DIPHENHYDRAMINE HYDROCHLORIDE [Suspect]
     Active Substance: DIPHENHYDRAMINE HYDROCHLORIDE
     Indication: Premedication
     Dosage: 50 MG
     Route: 065
  3. SACITUZUMAB GOVITECAN [Suspect]
     Active Substance: SACITUZUMAB GOVITECAN
     Indication: Triple negative breast cancer
     Dosage: 760 MG
     Route: 042
  4. SACITUZUMAB GOVITECAN [Suspect]
     Active Substance: SACITUZUMAB GOVITECAN
     Dosage: 820 MG
     Route: 042
  5. SACITUZUMAB GOVITECAN [Suspect]
     Active Substance: SACITUZUMAB GOVITECAN
     Dosage: 760 MG
     Route: 042
  6. SACITUZUMAB GOVITECAN [Suspect]
     Active Substance: SACITUZUMAB GOVITECAN
     Dosage: 730 MG
     Route: 042
  7. SACITUZUMAB GOVITECAN [Suspect]
     Active Substance: SACITUZUMAB GOVITECAN
     Dosage: 730 MG
     Route: 042
  8. XELODA [Suspect]
     Active Substance: CAPECITABINE
     Dosage: UNK
     Route: 065
  9. ACETAMINOPHEN [Concomitant]
     Active Substance: ACETAMINOPHEN
     Dosage: UNK
  10. ACETAMINOPHEN [Concomitant]
     Active Substance: ACETAMINOPHEN
     Dosage: UNK
  11. ACETAMINOPHEN [Concomitant]
     Active Substance: ACETAMINOPHEN
     Dosage: UNK
  12. ACETAMINOPHEN [Concomitant]
     Active Substance: ACETAMINOPHEN
     Dosage: UNK
  13. ACETAMINOPHEN [Concomitant]
     Active Substance: ACETAMINOPHEN
     Dosage: UNK
  14. ACETAMINOPHEN [Concomitant]
     Active Substance: ACETAMINOPHEN
     Dosage: UNK
  15. DEXAMETHASONE [Concomitant]
     Active Substance: DEXAMETHASONE
     Dosage: UNK
  16. DEXAMETHASONE [Concomitant]
     Active Substance: DEXAMETHASONE
     Dosage: UNK
  17. DEXAMETHASONE [Concomitant]
     Active Substance: DEXAMETHASONE
     Dosage: UNK
  18. DEXAMETHASONE [Concomitant]
     Active Substance: DEXAMETHASONE
     Dosage: UNK
  19. DEXAMETHASONE [Concomitant]
     Active Substance: DEXAMETHASONE
     Dosage: UNK
  20. DEXAMETHASONE [Concomitant]
     Active Substance: DEXAMETHASONE
     Dosage: 10 MG
  21. DEXAMETHASONE [Concomitant]
     Active Substance: DEXAMETHASONE
     Dosage: UNK
  22. DEXAMETHASONE [Concomitant]
     Active Substance: DEXAMETHASONE
     Dosage: UNK
  23. DEXAMETHASONE [Concomitant]
     Active Substance: DEXAMETHASONE
     Dosage: UNK
  24. DEXAMETHASONE [Concomitant]
     Active Substance: DEXAMETHASONE
     Dosage: UNK
  25. DEXAMETHASONE [Concomitant]
     Active Substance: DEXAMETHASONE
     Dosage: UNK
  26. ELASOMERAN [Concomitant]
     Active Substance: ELASOMERAN
     Dosage: UNK
     Route: 065
  27. TYLENOL [Concomitant]
     Active Substance: ACETAMINOPHEN
     Dosage: UNK
  28. TYLENOL [Concomitant]
     Active Substance: ACETAMINOPHEN
     Dosage: UNK
  29. TYLENOL [Concomitant]
     Active Substance: ACETAMINOPHEN
     Dosage: UNK
  30. TYLENOL [Concomitant]
     Active Substance: ACETAMINOPHEN
     Dosage: UNK
  31. TYLENOL [Concomitant]
     Active Substance: ACETAMINOPHEN
     Dosage: UNK
  32. TYLENOL [Concomitant]
     Active Substance: ACETAMINOPHEN
     Dosage: UNK

REACTIONS (40)
  - Death [Fatal]
  - Abdominal pain upper [Unknown]
  - Asthenia [Unknown]
  - Constipation [Unknown]
  - Diarrhoea [Unknown]
  - Discomfort [Unknown]
  - Dysphagia [Unknown]
  - Dyspnoea [Unknown]
  - Eating disorder [Unknown]
  - Energy increased [Unknown]
  - Fatigue [Unknown]
  - Feeling jittery [Unknown]
  - Formication [Unknown]
  - Haemoglobin abnormal [Unknown]
  - Haemoglobin decreased [Unknown]
  - Heart rate increased [Unknown]
  - Hypersensitivity [Unknown]
  - Hypotension [Unknown]
  - Inappropriate schedule of product administration [Unknown]
  - Mass [Unknown]
  - Pain [Unknown]
  - Rash [Unknown]
  - Red blood cell count decreased [Unknown]
  - Somnolence [Unknown]
  - Speech disorder [Unknown]
  - Stress [Unknown]
  - Tooth fracture [Unknown]
  - Weight decreased [Unknown]
  - Weight fluctuation [Unknown]
  - Weight increased [Unknown]
  - Abdominal pain [Unknown]
  - Blood pressure systolic abnormal [Unknown]
  - Diarrhoea [Unknown]
  - Diarrhoea [Unknown]
  - Dizziness [Unknown]
  - Face injury [Unknown]
  - Gait disturbance [Unknown]
  - Lymphoedema [Unknown]
  - Peripheral swelling [Unknown]
  - Therapeutic response unexpected [Unknown]
